FAERS Safety Report 8952512 (Version 2)
Quarter: 2013Q2

REPORT INFORMATION
  Report Type: Spontaneous
  Country: US (occurrence: US)
  Receive Date: 20121205
  Receipt Date: 20130401
  Transmission Date: 20140414
  Serious: Yes (Other)
  Sender: FDA-Public Use
  Company Number: US-BAYER-2012-126654

PATIENT
  Sex: Female

DRUGS (4)
  1. YAZ [Suspect]
  2. YASMIN [Suspect]
     Indication: OLIGOMENORRHOEA
  3. YASMIN [Suspect]
     Indication: CONTRACEPTION
  4. OCELLA [Suspect]

REACTIONS (5)
  - Thrombosis [None]
  - Injury [None]
  - Pain [None]
  - Pain [None]
  - Deep vein thrombosis [None]
